FAERS Safety Report 8486829-1 (Version None)
Quarter: 2012Q3

REPORT INFORMATION
  Report Type: 
  Country: None (occurrence: None)
  Receive Date: 20120704
  Receipt Date: 20120625
  Transmission Date: 20120928
  Serious: Yes (Hospitalization, Other)
  Sender: FDA-Public Use
  Company Number: PL-BRISTOL-MYERS SQUIBB COMPANY-16589566

PATIENT
  Age: 39 Year
  Sex: Female

DRUGS (6)
  1. ATAZANAVIR [Suspect]
     Dosage: INTERRUPTED FROM OCT06 TO MAR07
     Route: 048
     Dates: start: 20061001
  2. VICEBROL [Concomitant]
     Dosage: 5 MG: 3 X 1 TAB
  3. NORVIR [Suspect]
     Route: 048
     Dates: start: 20061001
  4. ABACAVIR SULFATE/LAMIVUDINE [Suspect]
     Dosage: 1DF= 1 TAB
     Route: 048
     Dates: start: 20061001
  5. ENARENAL [Concomitant]
     Indication: HYPERTENSION
  6. NOOTROPIL [Concomitant]
     Dosage: 800 MG: 3 X 1 TAB

REACTIONS (3)
  - CEREBROVASCULAR ACCIDENT [None]
  - HAND FRACTURE [None]
  - MICROCYTIC ANAEMIA [None]
